FAERS Safety Report 10927264 (Version 2)
Quarter: 2016Q2

REPORT INFORMATION
  Report Type: Report from Study
  Country: BG (occurrence: BG)
  Receive Date: 20150318
  Receipt Date: 20160620
  Transmission Date: 20160815
  Serious: Yes (Hospitalization)
  Sender: FDA-Public Use
  Company Number: BG-GLAXOSMITHKLINE-Z0023066A

PATIENT
  Age: 55 Year
  Sex: Female
  Weight: 42.5 kg

DRUGS (9)
  1. BELIMUMAB [Suspect]
     Active Substance: BELIMUMAB
     Indication: SYSTEMIC LUPUS ERYTHEMATOSUS
     Dosage: 10 MG/KG, CYC
     Route: 042
     Dates: start: 20131107
  2. NIVALIN (NOS) [Concomitant]
     Indication: POLYNEUROPATHY
     Dosage: 10 MG, BID
     Route: 048
     Dates: start: 20130227
  3. AGAPURIN [Concomitant]
     Indication: RAYNAUD^S PHENOMENON
     Dosage: 400 MG, BID
     Route: 048
     Dates: start: 20110519
  4. ASPIRIN. [Concomitant]
     Active Substance: ASPIRIN
     Indication: RAYNAUD^S PHENOMENON
     Route: 048
     Dates: start: 20110519
  5. GLUCOBAY [Concomitant]
     Active Substance: ACARBOSE
     Indication: DIABETES MELLITUS
     Dosage: 100 UNK, TID
     Route: 048
     Dates: start: 20120312
  6. CALCIUM D [Concomitant]
     Active Substance: CALCIUM\VITAMIN D
     Indication: OSTEOPOROSIS
     Dosage: 1200 MG, BID
     Route: 048
     Dates: start: 20111027
  7. IBANDRONIC ACID [Concomitant]
     Active Substance: IBANDRONIC ACID
     Indication: OSTEOPOROSIS
     Dosage: 150 MG, CYC
     Route: 048
     Dates: start: 20111027
  8. CONCOR [Concomitant]
     Active Substance: BISOPROLOL FUMARATE
     Indication: TACHYCARDIA
     Route: 048
     Dates: start: 20120312
  9. GABANEURAL [Concomitant]
     Indication: POLYNEUROPATHY
     Route: 048
     Dates: start: 20130227

REACTIONS (1)
  - Gastroduodenitis [Recovered/Resolved]

NARRATIVE: CASE EVENT DATE: 20140731
